FAERS Safety Report 26087186 (Version 1)
Quarter: 2025Q4

REPORT INFORMATION
  Report Type: Spontaneous
  Country: EU (occurrence: EU)
  Receive Date: 20251125
  Receipt Date: 20251125
  Transmission Date: 20260117
  Serious: Yes (Life-Threatening, Hospitalization)
  Sender: MACLEODS
  Company Number: EU-MACLEODS PHARMA-MAC2025056493

PATIENT

DRUGS (7)
  1. CELECOXIB [Suspect]
     Active Substance: CELECOXIB
     Indication: Product used for unknown indication
     Dosage: 400 MG TWICE DAILY
     Route: 065
  2. LITHIUM [Suspect]
     Active Substance: LITHIUM
     Indication: Product used for unknown indication
     Dosage: 84 MG (12 MMOL) IN THE MORNING
     Route: 065
  3. SERTRALINE [Concomitant]
     Active Substance: SERTRALINE HYDROCHLORIDE
     Indication: Product used for unknown indication
     Route: 065
  4. LEVOMEPROMAZINE [Concomitant]
     Active Substance: LEVOMEPROMAZINE
     Indication: Product used for unknown indication
     Dosage: 25 MG AT NIGHT
     Route: 065
  5. TIBOLONE [Concomitant]
     Active Substance: TIBOLONE
     Indication: Product used for unknown indication
     Dosage: 2.5 MG DAILY
     Route: 065
  6. IBUPROFEN [Concomitant]
     Active Substance: IBUPROFEN
     Indication: Product used for unknown indication
     Dosage: 400 MG AS NEEDED AND UP TO FOUR TIMES DAILY
     Route: 065
  7. ESOMEPRAZOLE [Concomitant]
     Active Substance: ESOMEPRAZOLE
     Indication: Product used for unknown indication
     Route: 065

REACTIONS (9)
  - Hypotension [Recovered/Resolved]
  - Bradycardia [Recovered/Resolved]
  - Blood creatinine increased [Recovered/Resolved]
  - Malaise [Recovered/Resolved]
  - Nausea [Recovered/Resolved]
  - Abdominal pain [Recovered/Resolved]
  - Somnolence [Recovered/Resolved]
  - Toxicity to various agents [Unknown]
  - Drug interaction [Unknown]
